FAERS Safety Report 25849426 (Version 1)
Quarter: 2025Q3

REPORT INFORMATION
  Report Type: Spontaneous
  Country: EU (occurrence: EU)
  Receive Date: 20250925
  Receipt Date: 20250925
  Transmission Date: 20251021
  Serious: Yes (Other)
  Sender: JOHNSON AND JOHNSON
  Company Number: EU-SANDOZ-SDZ2025PL068453

PATIENT
  Age: 36 Year
  Sex: Male

DRUGS (2)
  1. INFLIXIMAB [Suspect]
     Active Substance: INFLIXIMAB
     Indication: Product used for unknown indication
     Dosage: 5 MG/KG, Q2MO
     Route: 041
     Dates: start: 201805
  2. SECUKINUMAB [Concomitant]
     Active Substance: SECUKINUMAB
     Indication: Product used for unknown indication
     Dosage: 300 MG, QMO
     Route: 065
     Dates: start: 201901

REACTIONS (2)
  - Superficial spreading melanoma stage unspecified [Unknown]
  - Therapeutic product effect incomplete [Unknown]
